FAERS Safety Report 8177448-5 (Version None)
Quarter: 2012Q1

REPORT INFORMATION
  Report Type: 
  Country: None (occurrence: None)
  Receive Date: 20120301
  Receipt Date: 20120227
  Transmission Date: 20120608
  Serious: No
  Sender: FDA-Public Use
  Company Number: US-PFIZER INC-2012032108

PATIENT
  Sex: Male
  Weight: 108.84 kg

DRUGS (7)
  1. PRAVASTATIN [Concomitant]
     Indication: BLOOD CHOLESTEROL ABNORMAL
     Dosage: TWO TABLETS OF 40 MG DAILY
  2. LISINOPRIL [Concomitant]
     Indication: HYPERTENSION
     Dosage: 2 TABLETS OF 20 MG DAILY
  3. NAPROXEN (ALEVE) [Concomitant]
     Indication: MUSCULOSKELETAL PAIN
     Dosage: 220 MG, 2X/DAY
  4. HYDROCODONE [Concomitant]
     Indication: MUSCULOSKELETAL PAIN
     Dosage: 3 TABLETS OF 7.5 MG DAILY
  5. PRILOSEC [Concomitant]
     Indication: DYSPEPSIA
     Dosage: 20 MG DAILY
  6. LYRICA [Suspect]
     Indication: NEUROPATHY PERIPHERAL
     Dosage: 50 MG, 3X/DAY
     Dates: start: 20111001
  7. METFORMIN [Concomitant]
     Indication: DIABETES MELLITUS
     Dosage: TWO TABLETS OF 500 MG DAILY

REACTIONS (1)
  - NASOPHARYNGITIS [None]
